FAERS Safety Report 6856736-6 (Version None)
Quarter: 2010Q3

REPORT INFORMATION
  Report Type: 
  Country: None (occurrence: None)
  Receive Date: 20100719
  Receipt Date: 20100707
  Transmission Date: 20110219
  Serious: Yes (Other)
  Sender: FDA-Public Use
  Company Number: US-BAYER-201018018NA

PATIENT
  Age: 48 Year
  Sex: Female
  Weight: 92 kg

DRUGS (14)
  1. MAGNEVIST [Suspect]
     Indication: ANGIOGRAM
     Dosage: AS USED: 30 ML  UNIT DOSE: 30 ML
     Dates: start: 20031117, end: 20031117
  2. MAGNEVIST [Suspect]
     Dosage: AS USED: 30 ML  UNIT DOSE: 30 ML
     Dates: start: 20040112, end: 20040112
  3. MAGNEVIST [Suspect]
     Dosage: AS USED: 20 ML  UNIT DOSE: 20 ML
     Dates: start: 20060113, end: 20060113
  4. MAGNEVIST [Suspect]
     Dates: start: 20070503, end: 20070503
  5. MAGNEVIST [Suspect]
     Dates: start: 20060620, end: 20060620
  6. MAGNEVIST [Suspect]
     Dates: start: 20070112, end: 20070112
  7. SODIUM BICARBONATE [Concomitant]
  8. CALCIUM SUPPLEMENT [Concomitant]
  9. NEPHROCAPS [Concomitant]
     Dosage: ONCE DAILY
  10. PLAVIX [Concomitant]
     Dosage: 75 MG ONCE A DAY
  11. ASPIRIN [Concomitant]
     Dosage: 325 MG EVERY MORNING
  12. PHOSLO [Concomitant]
     Dosage: 1337 MG THREE TIMES A DAY WITH MEALS
  13. VANCOMYCIN [Concomitant]
  14. RENAPHRO [Concomitant]

REACTIONS (8)
  - DEFORMITY [None]
  - GENERAL PHYSICAL HEALTH DETERIORATION [None]
  - MOBILITY DECREASED [None]
  - NEPHROGENIC SYSTEMIC FIBROSIS [None]
  - PAIN [None]
  - SKIN HYPERPIGMENTATION [None]
  - SKIN INDURATION [None]
  - SKIN TIGHTNESS [None]
